FAERS Safety Report 4264811-8 (Version None)
Quarter: 2004Q1

REPORT INFORMATION
  Report Type: 
  Country: None (occurrence: None)
  Receive Date: 20040105
  Receipt Date: 20031223
  Transmission Date: 20041129
  Serious: Yes (Hospitalization)
  Sender: FDA-Public Use
  Company Number: 2003126842

PATIENT
  Age: 33 Year
  Sex: Male
  Weight: 72.5755 kg

DRUGS (1)
  1. ROGAINE [Suspect]
     Indication: ALOPECIA
     Dosage: 2 ML, ONE TIME, ORAL
     Route: 048
     Dates: start: 20020701, end: 20020701

REACTIONS (3)
  - ARTERIOSPASM CORONARY [None]
  - MEDICATION ERROR [None]
  - MYOCARDIAL INFARCTION [None]
